FAERS Safety Report 5859179-7 (Version None)
Quarter: 2008Q3

REPORT INFORMATION
  Report Type: 
  Country: None (occurrence: None)
  Receive Date: 20080827
  Receipt Date: 20080817
  Transmission Date: 20090109
  Serious: Yes (Death)
  Sender: FDA-Public Use
  Company Number: US-TYCO HEALTHCARE/MALLINCKRODT-T200801355

PATIENT

DRUGS (1)
  1. METHADONE HCL [Suspect]
     Indication: SPINAL DISORDER
     Dosage: 1-2 TAB, TID
     Dates: start: 20060601

REACTIONS (2)
  - DEATH [None]
  - FEELING ABNORMAL [None]
